FAERS Safety Report 19996486 (Version 1)
Quarter: 2021Q4

REPORT INFORMATION
  Report Type: Other
  Country: ES (occurrence: ES)
  Receive Date: 20211026
  Receipt Date: 20211026
  Transmission Date: 20220303
  Serious: Yes (Hospitalization)
  Sender: FDA-Public Use
  Company Number: ES-SEID-COL-0410-2021

PATIENT
  Age: 11 Year
  Sex: Female

DRUGS (4)
  1. TOCILIZUMAB [Suspect]
     Active Substance: TOCILIZUMAB
     Indication: Polyarteritis nodosa
     Route: 065
  2. PREDNISONE [Suspect]
     Active Substance: PREDNISONE
     Indication: Polyarteritis nodosa
     Route: 065
  3. METHOTREXATE [Suspect]
     Active Substance: METHOTREXATE
     Indication: Polyarteritis nodosa
     Route: 065
  4. COLCHICINE [Suspect]
     Active Substance: COLCHICINE
     Indication: Polyarteritis nodosa
     Route: 065

REACTIONS (2)
  - COVID-19 [Recovered/Resolved]
  - Off label use [Unknown]
